FAERS Safety Report 4337971-8 (Version None)
Quarter: 2004Q2

REPORT INFORMATION
  Report Type: 
  Country: None (occurrence: None)
  Receive Date: 20040407
  Receipt Date: 20040322
  Transmission Date: 20050107
  Serious: Yes (Hospitalization)
  Sender: FDA-Public Use
  Company Number: US_0403101783

PATIENT
  Age: 29 Year
  Sex: Male

DRUGS (1)
  1. FLUOXETINE [Suspect]
     Indication: SOCIAL PHOBIA
     Dosage: 90 MG
     Dates: start: 20021101

REACTIONS (5)
  - ASPHYXIA [None]
  - DRUG INTERACTION [None]
  - LARYNGEAL OEDEMA [None]
  - NAIL INFECTION [None]
  - URTICARIA [None]
